FAERS Safety Report 14923509 (Version 1)
Quarter: 2018Q2

REPORT INFORMATION
  Report Type: Spontaneous
  Country: US (occurrence: US)
  Receive Date: 20180522
  Receipt Date: 20180522
  Transmission Date: 20180711
  Serious: No
  Sender: FDA-Public Use
  Company Number: US-TEVA-825130ACC

PATIENT
  Sex: Female

DRUGS (1)
  1. NYSTATIN. [Suspect]
     Active Substance: NYSTATIN
     Route: 065

REACTIONS (4)
  - Dysphonia [Unknown]
  - Laryngitis [Unknown]
  - Vocal cord disorder [Unknown]
  - Candida infection [Unknown]
